FAERS Safety Report 18878993 (Version 2)
Quarter: 2021Q2

REPORT INFORMATION
  Report Type: Report from Study
  Country: CN (occurrence: CN)
  Receive Date: 20210211
  Receipt Date: 20210614
  Transmission Date: 20210717
  Serious: Yes (Hospitalization)
  Sender: FDA-Public Use
  Company Number: CN-GLAXOSMITHKLINE-CN2021APC031889

PATIENT
  Age: 67 Year
  Sex: Male
  Weight: 60 kg

DRUGS (7)
  1. CARBOCYSTEINE ORAL SOLUTION [Concomitant]
     Active Substance: CARBOCYSTEINE
     Indication: ASTHMA
     Dosage: 10 ML
     Route: 048
     Dates: start: 20210119, end: 20210127
  2. NICOTINIC ACID [Concomitant]
     Active Substance: NIACIN
     Dosage: 80 MG, INTRAVENOUS DRIP
     Route: 042
     Dates: start: 20210119, end: 20210126
  3. METHYLPREDNISOLONE SODIUM SUCCINATE. [Concomitant]
     Active Substance: METHYLPREDNISOLONE SODIUM SUCCINATE
     Indication: ANTIINFLAMMATORY THERAPY
     Dosage: 40 MG, INTRAVENOUS DRIP
     Route: 042
     Dates: start: 20210120, end: 20210120
  4. NIFEDIPINE TABLETS [Concomitant]
     Indication: HYPERTENSION
     Dosage: 10 MG
     Route: 048
     Dates: start: 20210125, end: 20210125
  5. BROMHEXINE HYDROCHLORIDE [Concomitant]
     Active Substance: BROMHEXINE HYDROCHLORIDE
     Dosage: 4 MG, INTRAVENOUS DRIP
     Route: 042
     Dates: start: 20210119, end: 20210126
  6. UMECLIDINIUM BR+VILANTEROL TRIFENATATE [Suspect]
     Active Substance: UMECLIDINIUM BROMIDE\VILANTEROL TRIFENATATE
     Indication: CHRONIC OBSTRUCTIVE PULMONARY DISEASE
     Dosage: 62.5 UG, NASAL SPRAY, ORAL SPRAY (INHALATION)
     Route: 055
     Dates: start: 20210120
  7. BUDESONIDE SUSPENSION FOR INHALATION [Concomitant]
     Active Substance: BUDESONIDE
     Indication: ASTHMA
     Dosage: 1 MG, NASAL SPRAY,ORAL SPRAY (INHALATION)
     Route: 055
     Dates: start: 20210119, end: 20210126

REACTIONS (1)
  - Dyspnoea [Not Recovered/Not Resolved]

NARRATIVE: CASE EVENT DATE: 20210201
